FAERS Safety Report 9861381 (Version 1)
Quarter: 2014Q1

REPORT INFORMATION
  Report Type: Spontaneous
  Country: MX (occurrence: MX)
  Receive Date: 20140203
  Receipt Date: 20140203
  Transmission Date: 20141002
  Serious: Yes (Disabling)
  Sender: FDA-Public Use
  Company Number: MX-ROCHE-1341519

PATIENT
  Age: 60 Year
  Sex: Female
  Weight: 96 kg

DRUGS (8)
  1. TOCILIZUMAB [Suspect]
     Indication: RHEUMATOID ARTHRITIS
     Route: 065
     Dates: start: 20140120
  2. TOCILIZUMAB [Suspect]
     Indication: RHEUMATOID ARTHRITIS
  3. TOCILIZUMAB [Suspect]
     Indication: RHEUMATOID ARTHRITIS
  4. KETOROLAC [Suspect]
     Indication: RHEUMATOID ARTHRITIS
     Route: 030
     Dates: start: 201308
  5. KETOROLAC [Suspect]
     Indication: RHEUMATOID ARTHRITIS
  6. KETOROLAC [Suspect]
     Indication: RHEUMATOID ARTHRITIS
  7. KETOROLAC [Suspect]
     Indication: RHEUMATOID ARTHRITIS
  8. DEXAMETHASONE [Suspect]
     Indication: RHEUMATOID ARTHRITIS
     Route: 030
     Dates: start: 201308

REACTIONS (1)
  - Arthralgia [Not Recovered/Not Resolved]
